FAERS Safety Report 5958770-7 (Version None)
Quarter: 2008Q4

REPORT INFORMATION
  Report Type: 
  Country: None (occurrence: None)
  Receive Date: 20081119
  Receipt Date: 20081113
  Transmission Date: 20090506
  Serious: Yes (Hospitalization, Other)
  Sender: FDA-Public Use
  Company Number: US-BAYER-200813723BCC

PATIENT
  Age: 78 Year
  Sex: Female

DRUGS (8)
  1. ASPIRIN [Suspect]
     Indication: ANTICOAGULANT THERAPY
     Dosage: TOTAL DAILY DOSE: 81 MG  UNIT DOSE: 81 MG
  2. PLAVIX [Suspect]
     Indication: ANTICOAGULANT THERAPY
     Dosage: TOTAL DAILY DOSE: 75 MG  UNIT DOSE: 75 MG
  3. HEPARIN SODIUM [Suspect]
     Indication: CAROTID ENDARTERECTOMY
     Route: 040
     Dates: start: 20070206
  4. CALCIUM [Concomitant]
  5. VITAMIN D [Concomitant]
  6. METOPROLOL TARTRATE [Concomitant]
  7. CRYOPRECIPITATES [Concomitant]
  8. THROMBIN GEL [Concomitant]

REACTIONS (6)
  - ANXIETY [None]
  - CONFUSIONAL STATE [None]
  - HYPERTENSION [None]
  - INTERNATIONAL NORMALISED RATIO INCREASED [None]
  - ISCHAEMIC CEREBRAL INFARCTION [None]
  - POST PROCEDURAL HAEMORRHAGE [None]
